FAERS Safety Report 4851766-8 (Version None)
Quarter: 2005Q4

REPORT INFORMATION
  Report Type: 
  Country: None (occurrence: None)
  Receive Date: 20051209
  Receipt Date: 20051209
  Transmission Date: 20060501
  Serious: No
  Sender: FDA-Public Use
  Company Number: None

PATIENT
  Age: 54 Year
  Sex: Male
  Weight: 79.3795 kg

DRUGS (1)
  1. EFUDEX [Suspect]
     Indication: ACTINIC KERATOSIS
     Dosage: 40 GM TUBE BID TOPICALLY
     Route: 061
     Dates: start: 20051011, end: 20051025

REACTIONS (3)
  - APPLICATION SITE IRRITATION [None]
  - APPLICATION SITE PUSTULES [None]
  - APPLICATION SITE REACTION [None]
